FAERS Safety Report 16210337 (Version 1)
Quarter: 2019Q2

REPORT INFORMATION
  Report Type: Spontaneous
  Country: FR (occurrence: FR)
  Receive Date: 20190418
  Receipt Date: 20190418
  Transmission Date: 20190711
  Serious: Yes (Other)
  Sender: FDA-Public Use
  Company Number: FR-AUROBINDO-AUR-APL-2019-019799

PATIENT

DRUGS (7)
  1. PROPOFOL LIPURO [Suspect]
     Active Substance: PROPOFOL
     Indication: INDUCTION OF ANAESTHESIA
     Dosage: 200 MILLIGRAM, ONCE A DAY
     Route: 042
     Dates: start: 20190314, end: 20190314
  2. CONTRAMAL [Suspect]
     Active Substance: TRAMADOL HYDROCHLORIDE
     Indication: PAIN
     Dosage: 100 MILLIGRAM, ONCE A DAY
     Route: 042
     Dates: start: 20190314, end: 20190314
  3. NEFOPAM MYLAN [Suspect]
     Active Substance: NEFOPAM
     Indication: PAIN
     Dosage: 100 MILLIGRAM, ONCE A DAY
     Route: 042
     Dates: start: 20190314, end: 20190314
  4. PARACETAMOL [Suspect]
     Active Substance: ACETAMINOPHEN
     Indication: PAIN
     Dosage: 1 GRAM, ONCE A DAY
     Route: 042
     Dates: start: 20190314, end: 20190314
  5. SUFENTANIL [Suspect]
     Active Substance: SUFENTANIL
     Indication: INDUCTION OF ANAESTHESIA
     Dosage: 25 MICROGRAM, ONCE A DAY
     Route: 042
     Dates: start: 20190314, end: 20190314
  6. CISATRACURIUM MYLAN [Suspect]
     Active Substance: CISATRACURIUM
     Indication: INDUCTION OF ANAESTHESIA
     Dosage: 7 MILLIGRAM, ONCE A DAY
     Route: 042
     Dates: start: 20190314, end: 20190314
  7. CEFAZOLINE MYLAN [Suspect]
     Active Substance: CEFAZOLIN SODIUM
     Indication: ANTIBIOTIC THERAPY
     Dosage: 2 GRAM, ONCE A DAY
     Route: 042
     Dates: start: 20190314, end: 20190314

REACTIONS (1)
  - Erythema [Recovered/Resolved]

NARRATIVE: CASE EVENT DATE: 20190314
